FAERS Safety Report 6435347-0 (Version None)
Quarter: 2009Q4

REPORT INFORMATION
  Report Type: 
  Country: None (occurrence: None)
  Receive Date: 20091106
  Receipt Date: 20091023
  Transmission Date: 20100525
  Serious: Yes (Other)
  Sender: FDA-Public Use
  Company Number: AE09-014

PATIENT
  Age: 40 Year
  Sex: Male

DRUGS (4)
  1. LORCET-HD [Suspect]
     Dosage: INHALATION
     Route: 055
  2. VICODIN [Suspect]
     Dosage: INHALATION
     Route: 055
  3. PERCOCET [Suspect]
     Dosage: 3 TAB. 3 TIMES DAILY
  4. TYLOX [Suspect]
     Dosage: INHALATION
     Route: 055

REACTIONS (3)
  - DRUG ABUSE [None]
  - INCORRECT ROUTE OF DRUG ADMINISTRATION [None]
  - MULTIPLE DRUG OVERDOSE INTENTIONAL [None]
